FAERS Safety Report 11642242 (Version 1)
Quarter: 2015Q4

REPORT INFORMATION
  Report Type: Spontaneous
  Country: US (occurrence: US)
  Receive Date: 20151019
  Receipt Date: 20151019
  Transmission Date: 20160304
  Serious: No
  Sender: FDA-Public Use
  Company Number: US-PFIZER INC-2015334629

PATIENT
  Age: 54 Year
  Sex: Female
  Weight: 70 kg

DRUGS (1)
  1. IBRANCE [Suspect]
     Active Substance: PALBOCICLIB
     Indication: BREAST CANCER
     Dosage: 125 MG, CYCLIC (1-21 Q28DAYS)
     Route: 048

REACTIONS (3)
  - Decreased appetite [Unknown]
  - Contusion [Unknown]
  - Anaemia [Recovered/Resolved]
